FAERS Safety Report 25415868 (Version 1)
Quarter: 2025Q2

REPORT INFORMATION
  Report Type: Spontaneous
  Country: US (occurrence: US)
  Receive Date: 20250610
  Receipt Date: 20250610
  Transmission Date: 20250717
  Serious: Yes (Hospitalization, Other)
  Sender: NOVO NORDISK
  Company Number: US-NOVOPROD-1450656

PATIENT
  Age: 41 Year
  Sex: Male

DRUGS (1)
  1. TRESIBA [Suspect]
     Active Substance: INSULIN DEGLUDEC
     Indication: Type 1 diabetes mellitus
     Dosage: 21 IU, QD
     Route: 058
     Dates: start: 202205

REACTIONS (1)
  - Toe amputation [Recovered/Resolved]

NARRATIVE: CASE EVENT DATE: 20231101
